FAERS Safety Report 10185507 (Version 1)
Quarter: 2014Q2

REPORT INFORMATION
  Report Type: Spontaneous
  Country: US (occurrence: US)
  Receive Date: 20140521
  Receipt Date: 20140521
  Transmission Date: 20141212
  Serious: Yes (Hospitalization, Other)
  Sender: FDA-Public Use
  Company Number: US-BAYER-2014-070759

PATIENT
  Age: 61 Year
  Sex: Female

DRUGS (2)
  1. DIPHENHYDRAMINE HYDROCHLORIDE [Suspect]
     Indication: SLEEP DISORDER
     Dosage: UP TO SIXTY 25-MG TABLETS OF DPH DAILY FOR AT LEAST 6 MONTHS AND POSSIBLY A COUPLE OF YEARS
     Route: 048
  2. SUBOXONE [Concomitant]
     Indication: DRUG ABUSE

REACTIONS (7)
  - Drug abuse [None]
  - Intentional overdose [None]
  - Withdrawal syndrome [Recovered/Resolved]
  - Agitation [Recovered/Resolved]
  - Hyperhidrosis [Recovered/Resolved]
  - Delirium [Recovered/Resolved]
  - Hypokalaemia [Recovered/Resolved]
